FAERS Safety Report 6337341-7 (Version None)
Quarter: 2009Q3

REPORT INFORMATION
  Report Type: 
  Country: None (occurrence: None)
  Receive Date: 20090902
  Receipt Date: 20070522
  Transmission Date: 20100115
  Serious: Yes (Other)
  Sender: FDA-Public Use
  Company Number: US-ASTRAZENECA-2006UW11118

PATIENT
  Age: 19534 Day
  Sex: Female
  Weight: 108 kg

DRUGS (11)
  1. SEROQUEL [Suspect]
     Indication: DEPRESSION
     Dosage: 25 MG, SAMPLES, DOSE AS USED: 25 MG
     Route: 048
     Dates: start: 20041101
  2. SEROQUEL [Suspect]
     Route: 048
     Dates: start: 20050318
  3. DARVOCET-N 100 [Concomitant]
     Dosage: 1 - 2 TABS QHS DAILY
     Route: 048
     Dates: start: 20050318
  4. CLONIDINE [Concomitant]
     Dosage: 4 DAILY
     Dates: start: 20050318
  5. ZOCOR [Concomitant]
     Route: 048
     Dates: start: 20010807
  6. DIOVAN [Concomitant]
     Dosage: STRENGTH: 80 MG, 160 MG. DOSE: 80 MG TO 160 MG DAILY
     Route: 048
     Dates: start: 20010807
  7. LOPRESSOR [Concomitant]
     Dosage: STRENGTH: 25 MG, 50 MG. DOSE: 50 MG TO 100 MG DAILY
     Route: 048
     Dates: start: 20010807
  8. NITRO-BID [Concomitant]
     Route: 048
     Dates: start: 20010807
  9. NORVASC [Concomitant]
     Route: 048
     Dates: start: 20010807
  10. ASPIRIN [Concomitant]
     Dates: start: 20030717
  11. ALEVE [Concomitant]
     Dates: start: 20040803

REACTIONS (3)
  - DIABETES MELLITUS [None]
  - HYPERGLYCAEMIA [None]
  - NEUROPATHY PERIPHERAL [None]
